FAERS Safety Report 24358424 (Version 1)
Quarter: 2024Q3

REPORT INFORMATION
  Report Type: Spontaneous
  Country: US (occurrence: US)
  Receive Date: 20240924
  Receipt Date: 20240924
  Transmission Date: 20241017
  Serious: No
  Sender: NEUROCRINE BIOSCIENCES
  Company Number: US-NEUROCRINE BIOSCIENCES INC.-2024NBI09226

PATIENT
  Age: 38 Year
  Sex: Male

DRUGS (1)
  1. INGREZZA [Suspect]
     Active Substance: VALBENAZINE
     Indication: Dyskinesia
     Dosage: 80 MILLIGRAM, UNKNOWN
     Route: 065

REACTIONS (1)
  - Mobility decreased [Not Recovered/Not Resolved]
